FAERS Safety Report 6475287-4 (Version None)
Quarter: 2009Q4

REPORT INFORMATION
  Report Type: 
  Country: None (occurrence: None)
  Receive Date: 20091204
  Receipt Date: 20090611
  Transmission Date: 20100525
  Serious: Yes (Hospitalization)
  Sender: FDA-Public Use
  Company Number: US-ELI_LILLY_AND_COMPANY-US200904001993

PATIENT
  Sex: Female
  Weight: 83.9 kg

DRUGS (8)
  1. BYETTA [Suspect]
     Indication: TYPE 2 DIABETES MELLITUS
     Dosage: 5 UG, 2/D
     Route: 058
     Dates: start: 20070701
  2. BYETTA [Suspect]
     Dosage: 5 UG, DAILY (1/D)
     Route: 058
     Dates: end: 20070801
  3. PEPCID [Concomitant]
     Indication: HIATUS HERNIA
  4. GLIPIZIDE [Concomitant]
     Indication: TYPE 2 DIABETES MELLITUS
     Route: 048
  5. LISINOPRIL [Concomitant]
     Indication: PROPHYLAXIS
  6. METOPROLOL [Concomitant]
     Indication: HYPERTENSION
     Route: 048
  7. PREVACID [Concomitant]
     Indication: HIATUS HERNIA
     Route: 048
  8. STARLIX [Concomitant]
     Route: 048

REACTIONS (1)
  - ADVERSE DRUG REACTION [None]
